FAERS Safety Report 23665678 (Version 1)
Quarter: 2024Q1

REPORT INFORMATION
  Report Type: Report from Study
  Country: GB (occurrence: GB)
  Receive Date: 20240323
  Receipt Date: 20240323
  Transmission Date: 20240410
  Serious: Yes (Other)
  Sender: FDA-Public Use
  Company Number: GB-SAMSUNG BIOEPIS-SB-2024-00292

PATIENT
  Age: 67 Year
  Sex: Female

DRUGS (5)
  1. TRIMETHOPRIM [Suspect]
     Active Substance: TRIMETHOPRIM
     Indication: Urinary tract infection
     Route: 065
  2. TRIMETHOPRIM [Suspect]
     Active Substance: TRIMETHOPRIM
     Indication: Urinary tract infection
     Route: 065
  3. OMEPRAZOLE [Concomitant]
     Active Substance: OMEPRAZOLE
     Indication: Product used for unknown indication
     Route: 065
  4. IMRALDI [Suspect]
     Active Substance: ADALIMUMAB
     Indication: Colitis ulcerative
     Dosage: 40 MG/0.8 ML EOW
     Route: 058
     Dates: start: 20231204
  5. IMRALDI [Suspect]
     Active Substance: ADALIMUMAB
     Indication: Colitis ulcerative
     Route: 058
     Dates: start: 20240101

REACTIONS (17)
  - Syncope [Unknown]
  - Insomnia [Unknown]
  - Miosis [Unknown]
  - Pollakiuria [Unknown]
  - Nervousness [Unknown]
  - Diarrhoea [Unknown]
  - Fatigue [Not Recovered/Not Resolved]
  - Feeling abnormal [Unknown]
  - Illness [Unknown]
  - Urinary tract infection [Recovering/Resolving]
  - Agitation [Unknown]
  - Night sweats [Unknown]
  - Product storage error [Unknown]
  - Malaise [Not Recovered/Not Resolved]
  - Thirst [Unknown]
  - Anxiety [Unknown]
  - Dizziness [Unknown]
